FAERS Safety Report 9717091 (Version 3)
Quarter: 2015Q3

REPORT INFORMATION
  Report Type: Spontaneous
  Country: US (occurrence: US)
  Receive Date: 20131127
  Receipt Date: 20150804
  Transmission Date: 20151125
  Serious: No
  Sender: FDA-Public Use
  Company Number: US-GILEAD-2009-0020638

PATIENT
  Age: 75 Year
  Sex: Female
  Weight: 43.09 kg

DRUGS (11)
  1. MOTRIN [Concomitant]
     Active Substance: IBUPROFEN
  2. LETAIRIS [Suspect]
     Active Substance: AMBRISENTAN
     Indication: PULMONARY ARTERIAL HYPERTENSION
     Route: 048
     Dates: start: 20080710
  3. NARVASC [Concomitant]
  4. PREDNISONE. [Concomitant]
     Active Substance: PREDNISONE
  5. SYNTHROID [Concomitant]
     Active Substance: LEVOTHYROXINE SODIUM
  6. VITAMIN D [Concomitant]
     Active Substance: CHOLECALCIFEROL
  7. ASPIRIN. [Concomitant]
     Active Substance: ASPIRIN
  8. LOZOL [Concomitant]
     Active Substance: INDAPAMIDE
  9. OXYGEN. [Concomitant]
     Active Substance: OXYGEN
  10. REVATIO [Concomitant]
     Active Substance: SILDENAFIL CITRATE
  11. PRILOSEC [Concomitant]
     Active Substance: OMEPRAZOLE MAGNESIUM

REACTIONS (6)
  - Rhinorrhoea [Unknown]
  - Weight increased [Unknown]
  - Hot flush [Unknown]
  - Oedema [Unknown]
  - Gastrointestinal ulcer [Unknown]
  - Abdominal discomfort [Unknown]
